FAERS Safety Report 13459715 (Version 5)
Quarter: 2017Q2

REPORT INFORMATION
  Report Type: Report from Study
  Country: RO (occurrence: RO)
  Receive Date: 20170420
  Receipt Date: 20170602
  Transmission Date: 20170830
  Serious: Yes (Hospitalization)
  Sender: FDA-Public Use
  Company Number: RO-B.I. PHARMACEUTICALS,INC./RIDGEFIELD-2017-BI-020512

PATIENT
  Age: 48 Year
  Sex: Male
  Weight: 74 kg

DRUGS (5)
  1. FLUCONAZOLE. [Suspect]
     Active Substance: FLUCONAZOLE
     Indication: CANDIDURIA
     Dosage: UNIT DOSE/DAILY DOSE: 400MG/200ML
     Route: 042
     Dates: start: 20161120, end: 20161228
  2. MEROPENEM. [Suspect]
     Active Substance: MEROPENEM
     Indication: PYELOCYSTITIS
     Route: 042
     Dates: start: 20161223, end: 20170102
  3. DABIGATRAN [Suspect]
     Active Substance: DABIGATRAN
     Route: 048
     Dates: start: 20170105
  4. DABIGATRAN [Suspect]
     Active Substance: DABIGATRAN
     Indication: DEEP VEIN THROMBOSIS
     Route: 048
     Dates: start: 20161218, end: 20161227
  5. FLUCONAZOLE. [Suspect]
     Active Substance: FLUCONAZOLE
     Indication: EYE INFECTION FUNGAL

REACTIONS (1)
  - Deep vein thrombosis [Not Recovered/Not Resolved]

NARRATIVE: CASE EVENT DATE: 20161225
